FAERS Safety Report 9383853 (Version 2)
Quarter: 2013Q3

REPORT INFORMATION
  Report Type: Report from Study
  Country: US (occurrence: US)
  Receive Date: 20130704
  Receipt Date: 20130716
  Transmission Date: 20140515
  Serious: Yes (Hospitalization)
  Sender: FDA-Public Use
  Company Number: US-AMGEN-USACT2013046585

PATIENT
  Age: 56 Year
  Sex: Male
  Weight: 81.18 kg

DRUGS (6)
  1. PANITUMUMAB [Suspect]
     Indication: COLORECTAL CANCER METASTATIC
     Dosage: 6 MG/KG, Q2WK
     Route: 042
     Dates: start: 20130502
  2. ERLOTINIB [Concomitant]
     Dosage: 150 MG, QD
     Route: 048
     Dates: start: 20130502
  3. ANTIBIOTICS [Concomitant]
  4. LOPRESSOR [Concomitant]
     Dosage: 50 MG, QD
     Dates: start: 20121203
  5. MOTRIN [Concomitant]
     Dosage: UNK UNK, AS NECESSARY
     Dates: start: 20121203
  6. PRILOSEC [Concomitant]
     Dosage: 20 MG, BID
     Dates: start: 20121203

REACTIONS (1)
  - Back pain [Recovered/Resolved]
